FAERS Safety Report 14390114 (Version 3)
Quarter: 2018Q2

REPORT INFORMATION
  Report Type: Report from Study
  Country: None (occurrence: FR)
  Receive Date: 20180115
  Receipt Date: 20180503
  Transmission Date: 20180711
  Serious: Yes (Hospitalization, Other)
  Sender: FDA-Public Use
  Company Number: FR-ABBVIE-18K-056-2222304-00

PATIENT
  Sex: Female

DRUGS (2)
  1. DUODOPA [Suspect]
     Active Substance: CARBIDOPA\LEVODOPA
     Dosage: CONTINUOUS FLOW RATE (DURING THE DAY): 2.4 ML/H
     Route: 050
  2. DUODOPA [Suspect]
     Active Substance: CARBIDOPA\LEVODOPA
     Indication: PARKINSON^S DISEASE
     Dosage: CONTINUOUS FLOW RATE (DURING THE DAY): 2.6 ML/H
     Route: 050
     Dates: start: 201607

REACTIONS (11)
  - Procedural complication [Unknown]
  - Fall [Unknown]
  - Device dislocation [Unknown]
  - Dyskinesia [Recovered/Resolved]
  - Rib fracture [Unknown]
  - Loss of consciousness [Unknown]
  - Facial bones fracture [Unknown]
  - Emotional distress [Unknown]
  - Syncope [Unknown]
  - Device damage [Not Recovered/Not Resolved]
  - Crying [Unknown]

NARRATIVE: CASE EVENT DATE: 20171215
